FAERS Safety Report 5402427-8 (Version None)
Quarter: 2007Q3

REPORT INFORMATION
  Report Type: 
  Country: None (occurrence: None)
  Receive Date: 20070801
  Receipt Date: 20070720
  Transmission Date: 20080115
  Serious: Yes (Life-Threatening, Hospitalization)
  Sender: FDA-Public Use
  Company Number: AT-GENENTECH-245205

PATIENT
  Age: 76 Year
  Sex: Female

DRUGS (3)
  1. TRASTUZUMAB [Suspect]
     Indication: BREAST CANCER METASTATIC
     Dosage: 8 MG/KG, UNK
     Route: 042
     Dates: start: 20070626
  2. TRASTUZUMAB [Suspect]
     Dosage: 370 MG, UNK
     Route: 042
     Dates: start: 20070719
  3. DOCETAXEL [Suspect]
     Indication: BREAST CANCER METASTATIC
     Dosage: 160 MG, Q3W
     Route: 042

REACTIONS (1)
  - CORONARY ARTERY OCCLUSION [None]
